FAERS Safety Report 7310186-7 (Version None)
Quarter: 2011Q1

REPORT INFORMATION
  Report Type: 
  Country: None (occurrence: None)
  Receive Date: 20110224
  Receipt Date: 20110216
  Transmission Date: 20110831
  Serious: Yes (Hospitalization, Other)
  Sender: FDA-Public Use
  Company Number: JP-ASTELLAS-2011JP001257

PATIENT
  Age: 6 Year
  Sex: Male

DRUGS (8)
  1. NEUPOGEN [Concomitant]
     Dosage: 5 UG/KG, UNKNOWN/D
     Route: 042
  2. ANTIBIOTICS [Concomitant]
     Route: 048
  3. PROGRAF [Suspect]
     Indication: IMMUNOSUPPRESSANT DRUG THERAPY
     Dosage: 0.03 MG/KG, CONTINUOUS
     Route: 041
  4. POLYGAM S/D [Concomitant]
     Dosage: UNK MG/KG, UNKNOWN/D
     Route: 042
  5. METHOTREXATE [Concomitant]
     Dosage: 10 MG/M2, UNKNOWN/D
     Route: 042
  6. METHOTREXATE [Concomitant]
     Dosage: 15 MG/M2, UNKNOWN/D
     Route: 042
  7. MICAFUNGIN [Concomitant]
     Dosage: 2 MG/KG, UNKNOWN/D
     Route: 042
  8. ACYCLOVIR [Concomitant]
     Dosage: 10 MG/KG, UNKNOWN/D
     Route: 042

REACTIONS (3)
  - DRUG INEFFECTIVE [None]
  - ACUTE GRAFT VERSUS HOST DISEASE [None]
  - THROMBOTIC MICROANGIOPATHY [None]
